FAERS Safety Report 8877644 (Version 1)
Quarter: 2012Q4

REPORT INFORMATION
  Report Type: Spontaneous
  Country: US (occurrence: None)
  Receive Date: 20121031
  Receipt Date: 20121031
  Transmission Date: 20130627
  Serious: Yes (Other)
  Sender: FDA-Public Use
  Company Number: None

PATIENT
  Sex: Female
  Weight: 29.2 kg

DRUGS (2)
  1. KEPPRA [Suspect]
     Indication: EPILEPSY
     Dosage: 3mL BiID PO
     Route: 048
     Dates: start: 20090706
  2. KEPPRA [Suspect]
     Indication: WILLIAMS SYNDROME
     Dosage: 3mL BiID PO
     Route: 048
     Dates: start: 20090706

REACTIONS (1)
  - Aura [None]
